FAERS Safety Report 7793146-1 (Version None)
Quarter: 2011Q4

REPORT INFORMATION
  Report Type: 
  Country: None (occurrence: None)
  Receive Date: 20111003
  Receipt Date: 20110906
  Transmission Date: 20120403
  Serious: No
  Sender: FDA-Public Use
  Company Number: US-TYCO HEALTHCARE/MALLINCKRODT-T201101777

PATIENT
  Sex: Male

DRUGS (2)
  1. DILAUDID [Concomitant]
     Indication: BREAKTHROUGH PAIN
     Dosage: UNK
  2. EXALGO [Suspect]
     Indication: PAIN
     Dosage: 12 MG QD AT BEDTIME
     Dates: start: 20110101

REACTIONS (3)
  - BREAKTHROUGH PAIN [None]
  - DRUG EFFECT DECREASED [None]
  - MIDDLE INSOMNIA [None]
